FAERS Safety Report 7033301-1 (Version None)
Quarter: 2010Q4

REPORT INFORMATION
  Report Type: 
  Country: None (occurrence: None)
  Receive Date: 20101004
  Receipt Date: 20100921
  Transmission Date: 20110411
  Serious: Yes (Hospitalization)
  Sender: FDA-Public Use
  Company Number: 002662

PATIENT
  Age: 51 Year
  Sex: Male

DRUGS (7)
  1. LACOSAMIDE [Suspect]
     Indication: CONVULSION
     Dosage: (50 MG BID ORAL), (100 MG BID ORAL), (300 MG, 100 MG IN MORNING, 200 MG AT NIGHT ORAL)
     Route: 048
     Dates: start: 20090602, end: 20090618
  2. LACOSAMIDE [Suspect]
     Indication: CONVULSION
     Dosage: (50 MG BID ORAL), (100 MG BID ORAL), (300 MG, 100 MG IN MORNING, 200 MG AT NIGHT ORAL)
     Route: 048
     Dates: start: 20090619, end: 20090728
  3. LACOSAMIDE [Suspect]
     Indication: CONVULSION
     Dosage: (50 MG BID ORAL), (100 MG BID ORAL), (300 MG, 100 MG IN MORNING, 200 MG AT NIGHT ORAL)
     Route: 048
     Dates: start: 20090729, end: 20090917
  4. VALPROIC ACID [Suspect]
     Indication: CONVULSION
     Dosage: (DOSE NOT REPORTED ORAL), ( 1 G BID)
     Route: 048
     Dates: start: 20080601, end: 20090619
  5. VALPROIC ACID [Suspect]
     Indication: CONVULSION
     Dosage: (DOSE NOT REPORTED ORAL), ( 1 G BID)
     Route: 048
     Dates: start: 20090619, end: 20090917
  6. PHENYTOIN [Concomitant]
  7. ZOCOR [Concomitant]

REACTIONS (2)
  - PLATELET COUNT DECREASED [None]
  - WHITE BLOOD CELL COUNT DECREASED [None]
